FAERS Safety Report 6268252-3 (Version None)
Quarter: 2009Q3

REPORT INFORMATION
  Report Type: 
  Country: None (occurrence: None)
  Receive Date: 20090715
  Receipt Date: 20090529
  Transmission Date: 20100115
  Serious: Yes (Other)
  Sender: FDA-Public Use
  Company Number: KR-JNJFOC-20090702054

PATIENT
  Age: 62 Year
  Sex: Female

DRUGS (4)
  1. ITRACONAZOLE [Suspect]
     Indication: CONJUNCTIVITIS INFECTIVE
     Route: 065
  2. ITRACONAZOLE [Suspect]
     Route: 057
  3. ITRACONAZOLE [Suspect]
     Route: 061
  4. AMPHOTERECIN B [Concomitant]
     Indication: CONJUNCTIVITIS INFECTIVE
     Route: 065

REACTIONS (5)
  - ANTERIOR CHAMBER INFLAMMATION [None]
  - CONJUNCTIVITIS INFECTIVE [None]
  - INCORRECT ROUTE OF DRUG ADMINISTRATION [None]
  - RETINAL DETACHMENT [None]
  - VITREOUS OPACITIES [None]
